FAERS Safety Report 19407986 (Version 1)
Quarter: 2021Q2

REPORT INFORMATION
  Report Type: Spontaneous
  Country: FR (occurrence: FR)
  Receive Date: 20210611
  Receipt Date: 20210611
  Transmission Date: 20210717
  Serious: Yes (Death, Hospitalization, Other)
  Sender: FDA-Public Use
  Company Number: FR-PFIZER INC-2021633171

PATIENT
  Age: 69 Year
  Sex: Male

DRUGS (5)
  1. IDARUBICIN HCL [Suspect]
     Active Substance: IDARUBICIN HYDROCHLORIDE
     Indication: ACUTE MYELOID LEUKAEMIA
     Dosage: UNK
  2. LOMUSTINE. [Suspect]
     Active Substance: LOMUSTINE
     Indication: ACUTE MYELOID LEUKAEMIA
     Dosage: UNK
  3. XOSPATA [Suspect]
     Active Substance: GILTERITINIB
     Indication: ACUTE MYELOID LEUKAEMIA
     Dosage: 3 DF, 1X/DAY
     Route: 048
     Dates: start: 20210427, end: 20210509
  4. DEXAMETHASONE. [Suspect]
     Active Substance: DEXAMETHASONE
     Indication: ACUTE MYELOID LEUKAEMIA
     Dosage: UNK
  5. ARACYTINE [Suspect]
     Active Substance: CYTARABINE
     Indication: ACUTE MYELOID LEUKAEMIA
     Dosage: UNK

REACTIONS (3)
  - Neoplasm progression [Fatal]
  - Clostridium difficile infection [Not Recovered/Not Resolved]
  - Melaena [Recovered/Resolved]

NARRATIVE: CASE EVENT DATE: 202105
